FAERS Safety Report 5308850-4 (Version None)
Quarter: 2007Q2

REPORT INFORMATION
  Report Type: 
  Country: None (occurrence: None)
  Receive Date: 20070426
  Receipt Date: 20070417
  Transmission Date: 20071010
  Serious: No
  Sender: FDA-Public Use
  Company Number: US-BAXTER-2006BH015031

PATIENT
  Age: 52 Year
  Sex: Female

DRUGS (4)
  1. GAMMAGARD S/D [Suspect]
     Indication: CHRONIC INFLAMMATORY DEMYELINATING POLYRADICULONEUROPATHY
     Dosage: DOSE UNIT:UNKNOWN
     Route: 065
     Dates: start: 20061118, end: 20061120
  2. GAMMAGARD S/D [Suspect]
     Indication: OFF LABEL USE
     Dosage: DOSE UNIT:UNKNOWN
     Route: 065
     Dates: start: 20061118, end: 20061120
  3. GAMMAGARD S/D [Suspect]
     Dosage: DOSE UNIT:UNKNOWN
     Route: 065
     Dates: start: 20061118, end: 20061120
  4. GAMMAGARD S/D [Suspect]
     Dosage: DOSE UNIT:UNKNOWN
     Route: 065
     Dates: start: 20061118, end: 20061120

REACTIONS (5)
  - CHEST PAIN [None]
  - DYSPNOEA [None]
  - HEPATITIS [None]
  - NAUSEA [None]
  - SWELLING [None]
